FAERS Safety Report 5206121-8 (Version None)
Quarter: 2007Q1

REPORT INFORMATION
  Report Type: 
  Country: None (occurrence: None)
  Receive Date: 20070108
  Receipt Date: 20061229
  Transmission Date: 20070707
  Serious: Yes (Hospitalization)
  Sender: FDA-Public Use
  Company Number: 222463

PATIENT
  Age: 65 Year
  Sex: Male

DRUGS (8)
  1. AVASTIN [Suspect]
     Indication: GASTRIC CANCER
     Dosage: 465 MG, INTRAVENOUS
     Route: 042
     Dates: start: 20060119
  2. TEGAFUR(TEGAFUR) [Suspect]
     Indication: GASTRIC CANCER
     Dosage: 45 MG, ORAL
     Route: 048
     Dates: start: 20060119
  3. OXALIPLATIN [Suspect]
     Indication: GASTRIC CANCER
     Dosage: 224 MG, INTRAVENOUS
     Route: 042
     Dates: start: 20060119
  4. ZOFRAN [Concomitant]
  5. COLACE (DOCUSATE SODIUM) [Concomitant]
  6. HYTRIN [Concomitant]
  7. PREVACID [Concomitant]
  8. IMODIUM [Concomitant]

REACTIONS (17)
  - CLOSTRIDIUM DIFFICILE COLITIS [None]
  - COLITIS [None]
  - CONDITION AGGRAVATED [None]
  - DEHYDRATION [None]
  - DIARRHOEA [None]
  - DILATATION ATRIAL [None]
  - DIVERTICULITIS [None]
  - FATIGUE [None]
  - GASTRIC DISORDER [None]
  - HYDRONEPHROSIS [None]
  - HYPERTENSION [None]
  - LYMPHADENOPATHY [None]
  - NAUSEA [None]
  - PERICARDIAL EFFUSION [None]
  - PERITONEAL CARCINOMA [None]
  - PLEURAL EFFUSION [None]
  - VOMITING [None]
